FAERS Safety Report 4641534-4 (Version None)
Quarter: 2005Q2

REPORT INFORMATION
  Report Type: 
  Country: None (occurrence: None)
  Receive Date: 20050421
  Receipt Date: 20050412
  Transmission Date: 20051028
  Serious: Yes (Other)
  Sender: FDA-Public Use
  Company Number: FR-ROCHE-401695

PATIENT
  Sex: Female

DRUGS (2)
  1. PEGASYS [Suspect]
     Indication: HEPATITIS C
     Route: 065
     Dates: start: 20041015, end: 20041215
  2. REBETOL [Suspect]
     Indication: HEPATITIS C
     Route: 065
     Dates: start: 20041015, end: 20041215

REACTIONS (6)
  - ALOPECIA [None]
  - BLOOD BLISTER [None]
  - DRY EYE [None]
  - ECZEMA [None]
  - KERATITIS [None]
  - TOXIC EPIDERMAL NECROLYSIS [None]
